FAERS Safety Report 21568346 (Version 1)
Quarter: 2022Q4

REPORT INFORMATION
  Report Type: Spontaneous
  Country: US (occurrence: None)
  Receive Date: 20221107
  Receipt Date: 20221107
  Transmission Date: 20230113
  Serious: Yes (Other)
  Sender: FDA-Public Use
  Company Number: None

PATIENT
  Age: 83 Year
  Sex: Male

DRUGS (5)
  1. ERLEADA [Suspect]
     Active Substance: APALUTAMIDE
     Indication: Prostate cancer
  2. LOVASTATIN [Concomitant]
     Active Substance: LOVASTATIN
  3. METOPROLOL [Concomitant]
     Active Substance: METOPROLOL
  4. LESINOPRIL [Concomitant]
  5. ASPIRIN [Concomitant]
     Active Substance: ASPIRIN

REACTIONS (3)
  - Hot flush [None]
  - Hypertension [None]
  - Therapy change [None]
